FAERS Safety Report 11426244 (Version 1)
Quarter: 2015Q3

REPORT INFORMATION
  Report Type: Spontaneous
  Country: US (occurrence: US)
  Receive Date: 20150821
  Receipt Date: 20150821
  Transmission Date: 20151125
  Serious: No
  Sender: FDA-Public Use
  Company Number: US-ELI_LILLY_AND_COMPANY-US201302002624

PATIENT
  Sex: Male
  Weight: 124.72 kg

DRUGS (2)
  1. ADCIRCA [Suspect]
     Active Substance: TADALAFIL
     Dosage: 20 MG, BID
     Dates: end: 201301
  2. ADCIRCA [Suspect]
     Active Substance: TADALAFIL
     Indication: ERECTILE DYSFUNCTION
     Dosage: 20 MG, QD
     Dates: start: 201212

REACTIONS (3)
  - Weight increased [Unknown]
  - Multiple sclerosis relapse [Recovering/Resolving]
  - Off label use [Recovered/Resolved]
